FAERS Safety Report 6315580-9 (Version None)
Quarter: 2009Q3

REPORT INFORMATION
  Report Type: 
  Country: None (occurrence: None)
  Receive Date: 20090818
  Receipt Date: 20090807
  Transmission Date: 20100115
  Serious: Yes (Life-Threatening, Hospitalization)
  Sender: FDA-Public Use
  Company Number: GXKR2009TR01126

PATIENT
  Age: 12 Year
  Sex: Male

DRUGS (2)
  1. AMITRIPTYLINE HCL [Suspect]
  2. METHANOL (METHANOL) [Suspect]

REACTIONS (36)
  - ABDOMINAL PAIN [None]
  - ALANINE AMINOTRANSFERASE INCREASED [None]
  - ALCOHOL USE [None]
  - ASPARTATE AMINOTRANSFERASE INCREASED [None]
  - BLOOD BICARBONATE DECREASED [None]
  - BLOOD CREATININE INCREASED [None]
  - BLOOD GLUCOSE INCREASED [None]
  - BLOOD SODIUM DECREASED [None]
  - BLOOD UREA INCREASED [None]
  - COMA [None]
  - DEHYDRATION [None]
  - DEPRESSED LEVEL OF CONSCIOUSNESS [None]
  - DIABETIC KETOACIDOSIS [None]
  - DRUG ABUSE [None]
  - ELECTROCARDIOGRAM QT PROLONGED [None]
  - EXTENSOR PLANTAR RESPONSE [None]
  - GASTROINTESTINAL TUBE INSERTION [None]
  - HAEMODIALYSIS [None]
  - HAEMOGLOBIN DECREASED [None]
  - HEPATOMEGALY [None]
  - HYPOREFLEXIA [None]
  - HYPOTENSION [None]
  - HYPOTHERMIA [None]
  - LIVER FUNCTION TEST ABNORMAL [None]
  - LOSS OF CONSCIOUSNESS [None]
  - MUCOSAL DRYNESS [None]
  - MUCOUS MEMBRANE DISORDER [None]
  - MULTI-ORGAN FAILURE [None]
  - MYDRIASIS [None]
  - OVERDOSE [None]
  - PANCREATITIS ACUTE [None]
  - PLATELET COUNT INCREASED [None]
  - RESPIRATORY ACIDOSIS [None]
  - SINUS BRADYCARDIA [None]
  - VOMITING [None]
  - WHITE BLOOD CELL COUNT INCREASED [None]
